FAERS Safety Report 23127732 (Version 2)
Quarter: 2023Q4

REPORT INFORMATION
  Report Type: Report from Study
  Country: US (occurrence: US)
  Receive Date: 20231031
  Receipt Date: 20231205
  Transmission Date: 20240109
  Serious: Yes (Hospitalization, Other)
  Sender: FDA-Public Use
  Company Number: US-ABBVIE-5473723

PATIENT
  Sex: Male

DRUGS (2)
  1. RINVOQ [Suspect]
     Active Substance: UPADACITINIB
     Indication: Rheumatoid arthritis
     Dosage: EXTENDED RELEASE?STRENGTH: 15 MG
     Route: 048
     Dates: start: 202309
  2. RINVOQ [Suspect]
     Active Substance: UPADACITINIB
     Indication: Rheumatoid arthritis
     Dosage: EXTENDED RELEASE?STRENGTH: 15 MG?LAST ADMIN DATE: 2023
     Route: 048
     Dates: start: 202301

REACTIONS (4)
  - Spinal operation [Unknown]
  - Staphylococcal infection [Unknown]
  - Wound dehiscence [Unknown]
  - Pain [Unknown]

NARRATIVE: CASE EVENT DATE: 20230101
